FAERS Safety Report 4872151-9 (Version None)
Quarter: 2005Q4

REPORT INFORMATION
  Report Type: 
  Country: None (occurrence: None)
  Receive Date: 20051230
  Receipt Date: 20051215
  Transmission Date: 20060501
  Serious: Yes (Hospitalization, Other)
  Sender: FDA-Public Use
  Company Number: US-2005-027155

PATIENT
  Age: 63 Year
  Sex: Female

DRUGS (2)
  1. BETASERON [Suspect]
     Indication: MULTIPLE SCLEROSIS
     Dosage: 8 MIU, EVERY 2D, SUBCUTANEOUS
     Route: 058
     Dates: start: 20040701
  2. INFLUENZA VACCINE (INFLUENZA VACCINE) [Suspect]
     Indication: PROPHYLAXIS
     Dosage: 1 DOSE,
     Dates: start: 20051215, end: 20051215

REACTIONS (5)
  - ACTIVITIES OF DAILY LIVING IMPAIRED [None]
  - ANAL DISCOMFORT [None]
  - MEMORY IMPAIRMENT [None]
  - RECTAL HAEMORRHAGE [None]
  - URINARY INCONTINENCE [None]
